FAERS Safety Report 20081851 (Version 1)
Quarter: 2021Q4

REPORT INFORMATION
  Report Type: Spontaneous
  Country: US (occurrence: None)
  Receive Date: 20211117
  Receipt Date: 20211117
  Transmission Date: 20220304
  Serious: No
  Sender: FDA-Public Use
  Company Number: None

PATIENT
  Age: 73 Year
  Sex: Male
  Weight: 116.1 kg

DRUGS (22)
  1. AXICABTAGENE CILOLEUCEL [Suspect]
     Active Substance: AXICABTAGENE CILOLEUCEL
     Indication: Diffuse large B-cell lymphoma
     Dosage: OTHER FREQUENCY : ONCE;?
     Route: 041
     Dates: start: 20210920, end: 20210920
  2. ACYCLOVIR [Concomitant]
     Active Substance: ACYCLOVIR
     Dates: end: 20211001
  3. ALBUMIN HUMAN [Concomitant]
     Active Substance: ALBUMIN HUMAN
     Dates: end: 20211003
  4. ALLOPURINOL [Concomitant]
     Active Substance: ALLOPURINOL
     Dates: start: 20210920, end: 20210924
  5. ALPRAZOLAM [Concomitant]
     Active Substance: ALPRAZOLAM
     Dates: end: 20210925
  6. AMLODIPINE [Concomitant]
     Active Substance: AMLODIPINE BESYLATE
     Dates: start: 20210920, end: 20211004
  7. ASPIRIN [Concomitant]
     Active Substance: ASPIRIN
     Dates: start: 20210920, end: 20211010
  8. ATENOLOL [Concomitant]
     Active Substance: ATENOLOL
     Dates: start: 20210920, end: 20211011
  9. AZTREONAM [Concomitant]
     Active Substance: AZTREONAM
     Dates: end: 20210930
  10. BACLOFEN [Concomitant]
     Active Substance: BACLOFEN
     Dates: end: 20211005
  11. CHLORHEXIDINE [Concomitant]
     Active Substance: CHLORHEXIDINE
     Dates: start: 20210920, end: 20211010
  12. CIPROFLOXACIN [Concomitant]
     Active Substance: CIPROFLOXACIN
     Dates: start: 20210920, end: 20210922
  13. DOCUSATE SODIUM [Concomitant]
     Active Substance: DOCUSATE SODIUM
     Dates: end: 20211009
  14. ENOXAPARIN [Concomitant]
     Active Substance: ENOXAPARIN
     Dates: start: 20210920, end: 20211010
  15. FAMOTIDINE [Concomitant]
     Active Substance: FAMOTIDINE
     Dates: end: 20211010
  16. FLUCONAZOLE [Concomitant]
     Active Substance: FLUCONAZOLE
     Dates: start: 20210920, end: 20211011
  17. FUROSEMIDE [Concomitant]
     Active Substance: FUROSEMIDE
     Dates: end: 20211004
  18. INSULIN GLARGINE [Concomitant]
     Active Substance: INSULIN GLARGINE
     Dates: end: 20211006
  19. INSULIN LISPRO [Concomitant]
     Active Substance: INSULIN LISPRO
     Dates: end: 20211005
  20. LOSARTAN [Concomitant]
     Active Substance: LOSARTAN
     Dates: start: 20210920, end: 20211011
  21. MAGNESIUM OXIDE [Concomitant]
     Active Substance: MAGNESIUM OXIDE
     Dates: end: 20211008
  22. ROSUVASTATIN [Concomitant]
     Active Substance: ROSUVASTATIN
     Dates: start: 20210920, end: 20211010

REACTIONS (2)
  - Cytokine release syndrome [None]
  - Neurotoxicity [None]

NARRATIVE: CASE EVENT DATE: 20210921
